FAERS Safety Report 24641792 (Version 1)
Quarter: 2024Q4

REPORT INFORMATION
  Report Type: Spontaneous
  Country: GB (occurrence: GB)
  Receive Date: 20241120
  Receipt Date: 20241120
  Transmission Date: 20250115
  Serious: Yes (Other)
  Sender: MYLAN
  Company Number: GB-MYLANLABS-2024M1103512

PATIENT
  Age: 42 Year
  Sex: Male

DRUGS (6)
  1. LOPERAMIDE [Suspect]
     Active Substance: LOPERAMIDE
     Indication: Bile acid malabsorption
     Dosage: 16 MILLIGRAM, QID
     Route: 065
  2. LOPERAMIDE [Suspect]
     Active Substance: LOPERAMIDE
     Dosage: UNK, DOSE REDUCED
     Route: 065
  3. COLESEVELAM [Suspect]
     Active Substance: COLESEVELAM
     Indication: Bile acid malabsorption
     Dosage: 1250 MILLIGRAM, TID, THREE TIMES PER DAY
     Route: 065
  4. CHOLESTYRAMINE [Concomitant]
     Active Substance: CHOLESTYRAMINE
     Indication: Bile acid malabsorption
     Dosage: UNK
     Route: 065
  5. LIRAGLUTIDE [Concomitant]
     Active Substance: LIRAGLUTIDE
     Indication: Frequent bowel movements
     Dosage: 0.6 MILLIGRAM, QD
     Route: 065
  6. LIRAGLUTIDE [Concomitant]
     Active Substance: LIRAGLUTIDE
     Dosage: 1.8 MILLIGRAM, QD, DOSE TITRATION 0.6MG INCREMENTS EACH WEEK
     Route: 065

REACTIONS (1)
  - Drug ineffective [Unknown]
